FAERS Safety Report 4753135-8 (Version None)
Quarter: 2005Q3

REPORT INFORMATION
  Report Type: 
  Country: None (occurrence: None)
  Receive Date: 20050826
  Receipt Date: 20050818
  Transmission Date: 20060218
  Serious: Yes (Other)
  Sender: FDA-Public Use
  Company Number: JP-MERCK-0508USA03707

PATIENT

DRUGS (4)
  1. HYDRODIURIL [Suspect]
     Indication: DIABETES INSIPIDUS
     Route: 048
  2. CAPTOPRIL [Concomitant]
     Route: 048
  3. [COMPOSITION UNSPECIFIED] [Concomitant]
     Route: 048
  4. SOLANAX [Concomitant]
     Route: 048

REACTIONS (2)
  - ANXIETY [None]
  - SUDDEN HEARING LOSS [None]
